FAERS Safety Report 4840875-5 (Version None)
Quarter: 2005Q4

REPORT INFORMATION
  Report Type: 
  Country: None (occurrence: None)
  Receive Date: 20051125
  Receipt Date: 20051107
  Transmission Date: 20060501
  Serious: Yes (Death)
  Sender: FDA-Public Use
  Company Number: 2005-DE-04858GD

PATIENT
  Age: 55 Year
  Sex: 0

DRUGS (3)
  1. ASPIRIN [Suspect]
     Dosage: PO
     Route: 048
  2. TRAZODONE HCL [Suspect]
     Dosage: PO
     Route: 048
  3. MIRTAZAPINE [Suspect]
     Dosage: PO
     Route: 048

REACTIONS (1)
  - SUICIDE ATTEMPT [None]
